FAERS Safety Report 19675356 (Version 2)
Quarter: 2021Q3

REPORT INFORMATION
  Report Type: Report from Study
  Country: None (occurrence: DE)
  Receive Date: 20210809
  Receipt Date: 20210809
  Transmission Date: 20211014
  Serious: Yes (Hospitalization)
  Sender: FDA-Public Use
  Company Number: DE-ABBVIE-21K-062-4025094-00

PATIENT
  Sex: Female

DRUGS (1)
  1. HUMIRA [Suspect]
     Active Substance: ADALIMUMAB
     Indication: PSORIASIS
     Route: 058
     Dates: start: 20120101, end: 2016

REACTIONS (4)
  - Osteoarthritis [Recovering/Resolving]
  - Cartilage development disorder [Recovered/Resolved]
  - Liver function test abnormal [Recovered/Resolved]
  - Scar [Recovered/Resolved]

NARRATIVE: CASE EVENT DATE: 2016
